FAERS Safety Report 10997479 (Version 1)
Quarter: 2015Q2

REPORT INFORMATION
  Report Type: Spontaneous
  Country: PT (occurrence: PT)
  Receive Date: 20150408
  Receipt Date: 20150408
  Transmission Date: 20150821
  Serious: Yes (Hospitalization)
  Sender: FDA-Public Use
  Company Number: PT-TEVA-552617ISR

PATIENT
  Age: 12 Year
  Sex: Female
  Weight: 41 kg

DRUGS (4)
  1. AMOXICILINA SANDOZ [Suspect]
     Active Substance: AMOXICILLIN
     Indication: TONSILLITIS
     Dosage: 2000 MILLIGRAM DAILY;
     Route: 048
     Dates: start: 20150212, end: 20150219
  2. ANTIGRIPPINE [Concomitant]
     Indication: RHINORRHOEA
     Dosage: 2 DOSAGE FORMS DAILY;
     Route: 048
     Dates: start: 20150205, end: 20150209
  3. CETIRIZINA [Concomitant]
     Active Substance: CETIRIZINE HYDROCHLORIDE
     Indication: RHINORRHOEA
     Dosage: 10 MILLIGRAM DAILY;
     Route: 048
     Dates: start: 20150212, end: 20150222
  4. IBUPROFENO RATIOPHARM 400 MG COMPRIMIDOS REVESTIDOS [Suspect]
     Active Substance: IBUPROFEN
     Indication: TONSILLITIS
     Dosage: 1200 MILLIGRAM DAILY;
     Route: 048
     Dates: start: 20150212, end: 20150216

REACTIONS (8)
  - Hyperbilirubinaemia [Not Recovered/Not Resolved]
  - Jaundice cholestatic [Not Recovered/Not Resolved]
  - Hepatitis toxic [None]
  - Alanine aminotransferase increased [Recovering/Resolving]
  - Gamma-glutamyltransferase increased [Not Recovered/Not Resolved]
  - Blood alkaline phosphatase increased [Recovering/Resolving]
  - Pruritus generalised [Recovering/Resolving]
  - Aspartate aminotransferase increased [Recovering/Resolving]

NARRATIVE: CASE EVENT DATE: 20150215
